FAERS Safety Report 18269378 (Version 1)
Quarter: 2020Q3

REPORT INFORMATION
  Report Type: Spontaneous
  Country: FR (occurrence: FR)
  Receive Date: 20200915
  Receipt Date: 20200915
  Transmission Date: 20201103
  Serious: Yes (Other)
  Sender: FDA-Public Use
  Company Number: FR-JAZZ-2020-FR-009563

PATIENT

DRUGS (1)
  1. KIDROLASE [Suspect]
     Active Substance: ASPARAGINASE
     Indication: PRODUCT USED FOR UNKNOWN INDICATION
     Dosage: UNKNOWN DOSE
     Route: 065

REACTIONS (1)
  - Hypersensitivity [Unknown]
